FAERS Safety Report 9653650 (Version 1)
Quarter: 2013Q4

REPORT INFORMATION
  Report Type: Spontaneous
  Country: US (occurrence: None)
  Receive Date: 20131028
  Receipt Date: 20131028
  Transmission Date: 20140711
  Serious: No
  Sender: FDA-Public Use
  Company Number: None

PATIENT
  Age: 62 Year
  Sex: Female
  Weight: 61.24 kg

DRUGS (1)
  1. LORAZEPAM [Suspect]
     Indication: ANXIETY
     Route: 048

REACTIONS (16)
  - Abdominal pain [None]
  - Nausea [None]
  - Confusional state [None]
  - Myalgia [None]
  - Palpitations [None]
  - Headache [None]
  - Fatigue [None]
  - Dizziness [None]
  - Throat tightness [None]
  - Sinus disorder [None]
  - Swelling [None]
  - Chills [None]
  - Feeling hot [None]
  - Insomnia [None]
  - Skin odour abnormal [None]
  - Product substitution issue [None]
